FAERS Safety Report 6361437-7 (Version None)
Quarter: 2009Q3

REPORT INFORMATION
  Report Type: 
  Country: None (occurrence: None)
  Receive Date: 20090918
  Receipt Date: 20090914
  Transmission Date: 20100115
  Serious: Yes (Death)
  Sender: FDA-Public Use
  Company Number: CO-JNJFOC-20090905265

PATIENT
  Age: 92 Year
  Sex: Male

DRUGS (2)
  1. RISPERDAL [Suspect]
     Indication: AKATHISIA
     Route: 065
  2. RISPERDAL [Suspect]
     Route: 065

REACTIONS (3)
  - HIP FRACTURE [None]
  - OFF LABEL USE [None]
  - PULMONARY EMBOLISM [None]
